FAERS Safety Report 9347492 (Version 3)
Quarter: 2013Q4

REPORT INFORMATION
  Report Type: Spontaneous
  Country: US (occurrence: US)
  Receive Date: 20130614
  Receipt Date: 20131101
  Transmission Date: 20140711
  Serious: No
  Sender: FDA-Public Use
  Company Number: US-B.I. PHARMACEUTICALS,INC./RIDGEFIELD-2013-BI-16304BP

PATIENT
  Age: 68 Year
  Sex: Male

DRUGS (2)
  1. COMBIVENT [Suspect]
     Indication: EMPHYSEMA
     Dosage: STRENGTH: 18 MCG / 103 MCG; DAILY DOSE: 144MCG/824MCG
     Route: 055
     Dates: start: 2003
  2. ADVAIR [Concomitant]
     Route: 055

REACTIONS (4)
  - Increased upper airway secretion [Not Recovered/Not Resolved]
  - Wheezing [Not Recovered/Not Resolved]
  - Drug ineffective [Not Recovered/Not Resolved]
  - Product quality issue [Not Recovered/Not Resolved]
